FAERS Safety Report 17294814 (Version 1)
Quarter: 2020Q1

REPORT INFORMATION
  Report Type: Report from Study
  Country: EG (occurrence: EG)
  Receive Date: 20200121
  Receipt Date: 20200121
  Transmission Date: 20200409
  Serious: Yes (Hospitalization, Other)
  Sender: FDA-Public Use
  Company Number: PHHY2018EG102471

PATIENT
  Age: 61 Year
  Sex: Female

DRUGS (6)
  1. GLIVEC [Suspect]
     Active Substance: IMATINIB MESYLATE
     Indication: CHRONIC MYELOID LEUKAEMIA
     Dosage: 400 MG, QD
     Route: 048
     Dates: start: 201708, end: 201805
  2. GLIVEC [Suspect]
     Active Substance: IMATINIB MESYLATE
     Dosage: 800 MG, QD
     Route: 048
  3. GLIVEC [Suspect]
     Active Substance: IMATINIB MESYLATE
     Dosage: 400 MG, QD
     Route: 048
     Dates: end: 201810
  4. TASIGNA [Suspect]
     Active Substance: NILOTINIB
     Indication: CHRONIC MYELOID LEUKAEMIA
     Dosage: 800 MG, QD
     Route: 048
     Dates: start: 201805
  5. DIAMICRON [Concomitant]
     Active Substance: GLICLAZIDE
     Indication: DIABETES MELLITUS
     Dosage: 60 MG, QD (10 YEARS AGO)
     Route: 065
  6. TASIGNA [Suspect]
     Active Substance: NILOTINIB
     Dosage: 300 MG, QD
     Route: 048

REACTIONS (17)
  - Fatigue [Recovered/Resolved]
  - Pain in extremity [Not Recovered/Not Resolved]
  - Blood iron increased [Not Recovered/Not Resolved]
  - Cytogenetic analysis abnormal [Not Recovered/Not Resolved]
  - Haemoglobin decreased [Not Recovered/Not Resolved]
  - Crying [Not Recovered/Not Resolved]
  - Cytogenetic analysis abnormal [Recovered/Resolved]
  - Back pain [Not Recovered/Not Resolved]
  - Fatigue [Recovered/Resolved]
  - Arthralgia [Recovering/Resolving]
  - Thrombocytopenia [Not Recovered/Not Resolved]
  - Chills [Not Recovered/Not Resolved]
  - White blood cell count increased [Not Recovered/Not Resolved]
  - Inappropriate schedule of product administration [Unknown]
  - Haematochezia [Recovering/Resolving]
  - Abdominal pain [Not Recovered/Not Resolved]
  - Drug ineffective [Unknown]

NARRATIVE: CASE EVENT DATE: 201801
